FAERS Safety Report 7662979-4 (Version None)
Quarter: 2011Q3

REPORT INFORMATION
  Report Type: 
  Country: None (occurrence: None)
  Receive Date: 20110805
  Receipt Date: 20100909
  Transmission Date: 20111222
  Serious: No
  Sender: FDA-Public Use
  Company Number: US-ABBOTT-10P-163-0670154-00

PATIENT
  Sex: Female

DRUGS (2)
  1. ATENOLOL W/HYDROCHLOROTHIAZIDE [Concomitant]
     Indication: BLOOD PRESSURE
  2. NIASPAN [Suspect]
     Indication: LOW DENSITY LIPOPROTEIN INCREASED
     Dosage: AT BEDTIME
     Route: 048
     Dates: start: 20091101, end: 20091201

REACTIONS (4)
  - ARTHRALGIA [None]
  - MYALGIA [None]
  - DRY EYE [None]
  - PAIN IN EXTREMITY [None]
